FAERS Safety Report 7963818-4 (Version None)
Quarter: 2011Q4

REPORT INFORMATION
  Report Type: 
  Country: None (occurrence: None)
  Receive Date: 20111208
  Receipt Date: 20111121
  Transmission Date: 20120403
  Serious: No
  Sender: FDA-Public Use
  Company Number: US-BAYER-2011-113035

PATIENT
  Age: 87 Year
  Sex: Female
  Weight: 54 kg

DRUGS (6)
  1. CLONIDINE [Concomitant]
  2. LEXAPRO [Concomitant]
  3. NEXIUM [Concomitant]
  4. NORVASC [Concomitant]
  5. ALEVE (CAPLET) [Suspect]
     Indication: ANALGESIC THERAPY
     Dosage: UNK
     Route: 048
     Dates: start: 20111118
  6. DIOVAN [Concomitant]

REACTIONS (1)
  - CONSTIPATION [None]
